FAERS Safety Report 7814000-2 (Version None)
Quarter: 2011Q4

REPORT INFORMATION
  Report Type: 
  Country: None (occurrence: None)
  Receive Date: 20111014
  Receipt Date: 20111003
  Transmission Date: 20120403
  Serious: Yes (Other)
  Sender: FDA-Public Use
  Company Number: AR-AMGEN-ARGSP2011016320

PATIENT
  Age: 53 Year
  Sex: Female
  Weight: 59 kg

DRUGS (5)
  1. COMBIVENT [Concomitant]
     Dosage: UNK
  2. FLUTICASONE PROPIONATE/SALMETEROL [Concomitant]
     Dosage: UNK
  3. ENBREL [Suspect]
     Indication: RHEUMATOID ARTHRITIS
     Dosage: 50 MG, WEEKLY
     Route: 058
     Dates: start: 20100801
  4. LEFLUNOMIDE [Concomitant]
     Dosage: UNK
  5. CORTICOSTEROIDS [Concomitant]
     Dosage: UNK

REACTIONS (8)
  - FUNGAL INFECTION [None]
  - HERPES VIRUS INFECTION [None]
  - ORAL FUNGAL INFECTION [None]
  - CONTUSION [None]
  - LARYNGITIS [None]
  - DIARRHOEA [None]
  - INJECTION SITE ERYTHEMA [None]
  - ASTHMA [None]
